FAERS Safety Report 4299901-7 (Version None)
Quarter: 2004Q1

REPORT INFORMATION
  Report Type: 
  Country: None (occurrence: None)
  Receive Date: 20040218
  Receipt Date: 20040129
  Transmission Date: 20041129
  Serious: Yes (Hospitalization, Other)
  Sender: FDA-Public Use
  Company Number: B0307360A

PATIENT
  Age: 38 Year
  Sex: Male

DRUGS (1)
  1. ZYBAN [Suspect]
     Indication: EX-SMOKER
     Dosage: 150 MG/PER DAY/ ORAL
     Route: 048
     Dates: start: 20030713, end: 20030720

REACTIONS (11)
  - BRAIN STEM INFARCTION [None]
  - EYELID PTOSIS [None]
  - HEADACHE [None]
  - HICCUPS [None]
  - HYPOAESTHESIA [None]
  - PHOTOSENSITIVITY REACTION [None]
  - PUPILS UNEQUAL [None]
  - SENSORY DISTURBANCE [None]
  - VOMITING [None]
  - WALLENBERG SYNDROME [None]
  - WHITE BLOOD CELL COUNT INCREASED [None]
